FAERS Safety Report 19247132 (Version 1)
Quarter: 2021Q2

REPORT INFORMATION
  Report Type: Spontaneous
  Country: US (occurrence: US)
  Receive Date: 20210512
  Receipt Date: 20210512
  Transmission Date: 20210717
  Serious: Yes (Hospitalization, Other)
  Sender: FDA-Public Use
  Company Number: US-TAKEDA-2021TUS028461

PATIENT
  Sex: Female

DRUGS (1)
  1. ENTYVIO [Suspect]
     Active Substance: VEDOLIZUMAB
     Indication: CROHN^S DISEASE
     Dosage: UNK UNK, Q8WEEKS
     Route: 065

REACTIONS (6)
  - Drug ineffective [Unknown]
  - Urinary tract infection [Unknown]
  - Off label use [Unknown]
  - Clostridium difficile infection [Unknown]
  - Drug-induced liver injury [Unknown]
  - Crohn^s disease [Unknown]
